FAERS Safety Report 7131211-2 (Version None)
Quarter: 2010Q4

REPORT INFORMATION
  Report Type: 
  Country: None (occurrence: None)
  Receive Date: 20101124
  Receipt Date: 20101124
  Transmission Date: 20110411
  Serious: No
  Sender: FDA-Public Use
  Company Number: None

PATIENT

DRUGS (1)
  1. HYLAND'S TEETH TABLETS [Suspect]

REACTIONS (4)
  - CONVULSION [None]
  - MUSCULAR WEAKNESS [None]
  - POSTURE ABNORMAL [None]
  - PRODUCT QUALITY ISSUE [None]
